FAERS Safety Report 6668864-9 (Version None)
Quarter: 2010Q2

REPORT INFORMATION
  Report Type: 
  Country: None (occurrence: None)
  Receive Date: 20100406
  Receipt Date: 20100324
  Transmission Date: 20101027
  Serious: Yes (Hospitalization)
  Sender: FDA-Public Use
  Company Number: JP-ROCHE-644399

PATIENT
  Age: 28 Year
  Sex: Female
  Weight: 51 kg

DRUGS (65)
  1. TOCILIZUMAB [Suspect]
     Indication: JUVENILE ARTHRITIS
     Route: 041
     Dates: start: 20080717, end: 20080922
  2. TOCILIZUMAB [Suspect]
     Route: 041
     Dates: start: 20081015, end: 20081110
  3. TOCILIZUMAB [Suspect]
     Route: 041
     Dates: start: 20081126, end: 20081218
  4. TOCILIZUMAB [Suspect]
     Route: 041
     Dates: start: 20090105, end: 20090706
  5. TOCILIZUMAB [Suspect]
     Route: 041
     Dates: start: 20091224
  6. PREDNISOLONE [Suspect]
     Indication: JUVENILE ARTHRITIS
     Dosage: DOSE FORM: PERORAL AGENT.
     Route: 048
     Dates: end: 20080417
  7. PREDNISOLONE [Suspect]
     Dosage: DOSE FORM: PERORAL AGENT.
     Route: 048
     Dates: start: 20080418, end: 20080727
  8. PREDNISOLONE [Suspect]
     Dosage: DOSE FORM: ORAL FORMULATION (NOT OTHERWISE SPECIFIED).
     Route: 048
     Dates: start: 20080728, end: 20080824
  9. PREDNISOLONE [Suspect]
     Dosage: DOSE FORM: PERORAL AGENT.
     Route: 048
     Dates: start: 20080825, end: 20080907
  10. PREDNISOLONE [Suspect]
     Dosage: DOSE FORM: PERORAL AGENT.
     Route: 048
     Dates: start: 20080908, end: 20080921
  11. PREDNISOLONE [Suspect]
     Dosage: DOSE FORM: PERORAL AGENT.
     Route: 048
     Dates: start: 20080922, end: 20081005
  12. PREDNISOLONE [Suspect]
     Dosage: DOSE FORM: PERORAL AGENT.
     Route: 048
     Dates: start: 20081006, end: 20081027
  13. PREDNISOLONE [Suspect]
     Dosage: DOSE FORM: PERORAL AGENT.
     Route: 048
     Dates: start: 20081028, end: 20081110
  14. PREDNISOLONE [Suspect]
     Route: 048
     Dates: start: 20081111, end: 20090709
  15. PREDNISOLONE [Suspect]
     Dosage: DOSE FORM: PERORAL AGENT.
     Route: 048
     Dates: start: 20090717, end: 20090724
  16. PREDNISOLONE [Suspect]
     Route: 048
     Dates: start: 20090725
  17. PREDNISOLONE [Suspect]
     Dosage: DOSE FORM: PERORAL AGENT.  NOTE: IN THE MORNING: 15 MG, IN THE DAYTIME: 15 MG, IN THE EVENING: 20 MG
     Route: 048
  18. PREDNISOLONE [Suspect]
     Dosage: DOSE FORM: PERORAL AGENT
     Route: 048
  19. PREDNISOLONE [Suspect]
     Dosage: DOSE FORM: PERORAL AGENT. NOTE: IN THE MORNING: 15MG, IN THE DAYTIME :10MG, IN THE EVENING: 10MG
     Route: 048
  20. PREDNISOLONE [Suspect]
     Dosage: DOSE FORM: PERORAL AGENT.  DOSE DECREASED
     Route: 048
  21. PREDNISOLONE [Suspect]
     Dosage: DOSE FORM: PERORAL AGENT.  DOSE DECREASED
     Route: 048
     Dates: start: 20091218, end: 20100121
  22. PREDNISOLONE [Suspect]
     Dosage: DOSE FORM: PERORAL AGENT
     Route: 048
     Dates: start: 20100122, end: 20100225
  23. PREDNISOLONE [Suspect]
     Dosage: DOSE FORM: PERORAL AGENT. NOTE: IN THE MORNING: 15MG, IN THE DAYTIME :10MG, IN THE EVENING: 10MG
     Route: 048
     Dates: start: 20100226, end: 20100309
  24. PREDNISOLONE [Suspect]
     Dosage: DOSE FORM: PERORAL AGENT
     Route: 048
     Dates: start: 20100310
  25. METHOTREXATE [Suspect]
     Indication: JUVENILE ARTHRITIS
     Route: 048
     Dates: end: 20090215
  26. METHOTREXATE [Suspect]
     Route: 048
     Dates: start: 20090216, end: 20090528
  27. METHOTREXATE [Suspect]
     Route: 048
     Dates: start: 20090529, end: 20090709
  28. IMURAN [Suspect]
     Indication: JUVENILE ARTHRITIS
     Route: 048
     Dates: end: 20081125
  29. IMURAN [Suspect]
     Route: 048
     Dates: start: 20081126, end: 20090215
  30. IMURAN [Suspect]
     Route: 048
     Dates: start: 20090216, end: 20090709
  31. LOXONIN [Concomitant]
     Route: 048
     Dates: end: 20090709
  32. LOXONIN [Concomitant]
     Route: 048
  33. COTRIM [Concomitant]
     Route: 048
     Dates: end: 20090709
  34. LIPITOR [Concomitant]
     Route: 048
     Dates: end: 20090412
  35. ACTOS [Concomitant]
     Route: 048
     Dates: start: 20080703, end: 20090316
  36. FOLIC ACID [Concomitant]
     Dosage: DRUG FROM: PERORAL AGENT.
     Route: 048
     Dates: end: 20090709
  37. LANSOPRAZOLE [Concomitant]
     Route: 048
     Dates: end: 20090709
  38. LANSOPRAZOLE [Concomitant]
     Route: 048
     Dates: start: 20090717
  39. LANSOPRAZOLE [Concomitant]
     Dosage: DOSE FORM: INJECTION. ROUTE: INTRAVENOUS (NOT OTHERWISE SPECIFIED)
     Route: 048
     Dates: start: 20090713, end: 20090713
  40. FOSAMAX [Concomitant]
     Dosage: DRUG REPORTED AS ALENDRONATE SODIUM HYDRATE.
     Route: 048
     Dates: end: 20090709
  41. FOSAMAX [Concomitant]
     Dosage: DRUG REPORTED AS ALENDRONATE SODIUM HYDRATE.
     Route: 048
  42. FUNGIZONE [Concomitant]
     Route: 048
     Dates: end: 20090709
  43. FUNGIZONE [Concomitant]
     Route: 048
     Dates: start: 20090717
  44. GASTROM [Concomitant]
     Dosage: DRUG REPORTED AS ECABET SODIUM.
     Route: 048
     Dates: end: 20090709
  45. SAXIZON [Concomitant]
     Dosage: ROUTE: INTRAVENOUS (NOT OTHERWISE SPECIFIED)
     Route: 042
     Dates: start: 20090710, end: 20090710
  46. CIPROFLOXACIN HCL [Concomitant]
     Dosage: ROUTE: INTRAVENOUS (NOR OTHERWISE SPECIFIED)
     Route: 042
     Dates: start: 20090710, end: 20090712
  47. CIPROFLOXACIN HCL [Concomitant]
     Dosage: ROUTE: INTRAVENOUS (NOR OTHERWISE SPECIFIED)
     Route: 042
     Dates: start: 20090713, end: 20090713
  48. PRIMPERAN INJ [Concomitant]
     Dosage: ROUTE: INTRAVENOUS (NOR OTHERWISE SPECIFIED)
     Route: 042
     Dates: start: 20090710, end: 20090710
  49. METILON [Concomitant]
     Dosage: ROUTE: INTRAVENOUS (NOR OTHERWISE SPECIFIED)
     Route: 042
     Dates: start: 20090710, end: 20090710
  50. VITAMEDIN [Concomitant]
     Dosage: ROUTE: INTRAVENOUS (NOR OTHERWISE SPECIFIED)
     Route: 042
     Dates: start: 20090710, end: 20090713
  51. PREDNISOLONE SODIUM SUCCINATE INJ [Concomitant]
     Dosage: ROUTE: INTRAVENOUS (NOR OTHERWISE SPECIFIED)
     Route: 042
     Dates: start: 20090711, end: 20090711
  52. PREDNISOLONE SODIUM SUCCINATE INJ [Concomitant]
     Route: 042
     Dates: start: 20090712, end: 20090713
  53. FAMOTIDINE [Concomitant]
     Dosage: ROUTE: INTRAVENOUS (NOR OTHERWISE SPECIFIED)
     Route: 042
     Dates: start: 20090714, end: 20090716
  54. MAGNESIUM OXIDE [Concomitant]
     Dosage: DOSE FORM: POWDERED MEDICINE
     Route: 048
     Dates: start: 20090717
  55. FOSMICIN S [Concomitant]
     Dosage: ROUTE: INTRAVENOUS (NOT OTHERWISE SPECIFIED)
     Route: 042
     Dates: start: 20090713, end: 20090713
  56. FOSMICIN S [Concomitant]
     Dosage: ROUTE: INTRAVENOUS (NOT OTHERWISE SPECIFIED)
     Route: 042
     Dates: start: 20090714, end: 20090715
  57. MUCOSTA [Concomitant]
     Route: 048
  58. BENZALIN [Concomitant]
     Route: 048
  59. NEORAL [Concomitant]
     Route: 048
  60. NEORAL [Concomitant]
     Route: 048
  61. NEORAL [Concomitant]
     Route: 048
  62. ALFAROL [Concomitant]
     Dosage: DRUG: ALFAROL CAPSULES(ALFACALCIDOL)
     Route: 048
  63. ZETIA [Concomitant]
     Route: 048
  64. BENZETHONIUM CHLORIDE [Concomitant]
     Dosage: DRUG: NEOSTELIN GREEN.  DOSE FORM: INCLUDE ASPECT.  ROUTE:OROPHARINGEAL. NOTE: 3-4 TIMES/DAY
     Route: 050
  65. LOXONIN [Concomitant]
     Route: 061

REACTIONS (6)
  - ARTHRALGIA [None]
  - BRONCHITIS [None]
  - HISTIOCYTOSIS HAEMATOPHAGIC [None]
  - HYPERTENSION [None]
  - LIVER DISORDER [None]
  - OEDEMA PERIPHERAL [None]
